FAERS Safety Report 4987958-7 (Version None)
Quarter: 2006Q2

REPORT INFORMATION
  Report Type: 
  Country: None (occurrence: None)
  Receive Date: 20060424
  Receipt Date: 20060407
  Transmission Date: 20061013
  Serious: Yes (Other)
  Sender: FDA-Public Use
  Company Number: NZ-2006-008407

PATIENT
  Sex: Female

DRUGS (1)
  1. BETAFERON [Suspect]
     Indication: MULTIPLE SCLEROSIS
     Dosage: USUAL BETAFERON DOSE, SUBCUTANEOUS
     Route: 058
     Dates: start: 20040101, end: 20060401

REACTIONS (2)
  - CELLULITIS [None]
  - INJECTION SITE NECROSIS [None]
